FAERS Safety Report 8311879 (Version 4)
Quarter: 2012Q4

REPORT INFORMATION
  Report Type: Spontaneous
  Country: US (occurrence: US)
  Receive Date: 20111227
  Receipt Date: 20121218
  Transmission Date: 20130627
  Serious: Yes (Death)
  Sender: FDA-Public Use
  Company Number: PHEH2011US012375

PATIENT
  Age: 58 Year
  Sex: Female

DRUGS (1)
  1. ZOMETA (ZOLEDRONATE) [Suspect]
     Indication: BREAST CANCER METASTATIC
     Dosage: 4 UNK, every 4 weeks
     Route: 042
     Dates: start: 20100730, end: 20111004

REACTIONS (2)
  - Neoplasm progression [Fatal]
  - Neoplasm malignant [Fatal]
